FAERS Safety Report 11660957 (Version 4)
Quarter: 2015Q4

REPORT INFORMATION
  Report Type: Spontaneous
  Country: BR (occurrence: BR)
  Receive Date: 20151026
  Receipt Date: 20151030
  Transmission Date: 20160304
  Serious: Yes (Other)
  Sender: FDA-Public Use
  Company Number: CHPA2015BR012314

PATIENT
  Age: 68 Year
  Sex: Female
  Weight: 74 kg

DRUGS (4)
  1. CORUS H [Concomitant]
     Active Substance: HYDROCHLOROTHIAZIDE\LOSARTAN POTASSIUM
     Indication: HYPERTENSION
     Dosage: 1 DF, QD
     Route: 048
     Dates: start: 2010
  2. SYNTHROID [Concomitant]
     Active Substance: LEVOTHYROXINE SODIUM
     Indication: HYPOTHYROIDISM
     Dosage: 1 DF, QD
     Route: 048
     Dates: start: 2007
  3. SIMVASTATIN. [Suspect]
     Active Substance: SIMVASTATIN
     Indication: BLOOD CHOLESTEROL
     Dosage: 1 DF, QD
     Route: 048
     Dates: end: 20150929
  4. CATAFLAMPRO XT EMUGEL [Suspect]
     Active Substance: DICLOFENAC DIETHYLAMINE
     Indication: SCIATICA
     Dosage: LARGE QUANTITY, 1 TO 2 TIMES
     Route: 062
     Dates: start: 201509, end: 201509

REACTIONS (10)
  - Asthenia [Recovering/Resolving]
  - Skin hypertrophy [Recovered/Resolved]
  - Pruritus [Recovered/Resolved]
  - Hypotension [Not Recovered/Not Resolved]
  - Decreased appetite [Recovering/Resolving]
  - Feeling hot [Recovered/Resolved]
  - Rash [Recovered/Resolved]
  - Blood pressure abnormal [Recovered/Resolved]
  - Poisoning [Recovering/Resolving]
  - Muscular weakness [Recovering/Resolving]

NARRATIVE: CASE EVENT DATE: 201509
